FAERS Safety Report 24572037 (Version 1)
Quarter: 2024Q4

REPORT INFORMATION
  Report Type: Spontaneous
  Country: US (occurrence: None)
  Receive Date: 20241031
  Receipt Date: 20241031
  Transmission Date: 20250115
  Serious: No
  Sender: Public
  Company Number: None

PATIENT
  Age: 71 Year
  Sex: Male
  Weight: 64 kg

DRUGS (2)
  1. IRINOTECAN HYDROCHLORIDE [Suspect]
     Active Substance: IRINOTECAN HYDROCHLORIDE
     Indication: Adenocarcinoma
     Dates: start: 20240515, end: 20240515
  2. LEUCOVORIN CALCIUM [Suspect]
     Active Substance: LEUCOVORIN CALCIUM
     Dates: start: 20240515, end: 20240515

REACTIONS (6)
  - Anaphylactic reaction [None]
  - Drug hypersensitivity [None]
  - Back pain [None]
  - Enteritis [None]
  - Diarrhoea [None]
  - Oesophageal candidiasis [None]

NARRATIVE: CASE EVENT DATE: 20240515
